FAERS Safety Report 4781875-3 (Version None)
Quarter: 2005Q3

REPORT INFORMATION
  Report Type: 
  Country: None (occurrence: None)
  Receive Date: 20050927
  Receipt Date: 20050914
  Transmission Date: 20060218
  Serious: Yes (Hospitalization, Other)
  Sender: FDA-Public Use
  Company Number: 2005130529

PATIENT
  Age: 80 Year
  Sex: Female
  Weight: 55.7924 kg

DRUGS (7)
  1. NORVASC [Suspect]
     Indication: HYPERTENSION
     Dosage: 5 MG (5 MG, EVERY DAY)
     Dates: end: 20050913
  2. VIOXX [Suspect]
     Indication: ARTHRITIS
  3. PRAVACHOL [Concomitant]
  4. ADVAIR DISKUS 100/50 [Concomitant]
  5. COMBIVENT (IPRATROPIUM BROMIDE, SLABUTAMOL SULFATE) [Concomitant]
  6. VITAMINS (VITAMINS) [Concomitant]
  7. FIBERCON (POLYCARBOPHIL CALCIUM) [Concomitant]

REACTIONS (11)
  - ARTHRITIS [None]
  - BRONCHITIS [None]
  - CATARACT OPERATION [None]
  - CEREBROVASCULAR ACCIDENT [None]
  - ECONOMIC PROBLEM [None]
  - HAEMATEMESIS [None]
  - HALLUCINATION, VISUAL [None]
  - NERVE INJURY [None]
  - SENSORY DISTURBANCE [None]
  - STOMACH DISCOMFORT [None]
  - ULCER HAEMORRHAGE [None]
